FAERS Safety Report 5113847-3 (Version None)
Quarter: 2006Q3

REPORT INFORMATION
  Report Type: 
  Country: None (occurrence: None)
  Receive Date: 20060921
  Receipt Date: 20060906
  Transmission Date: 20061208
  Serious: Yes (Hospitalization)
  Sender: FDA-Public Use
  Company Number: 02100-JPN-06-0429

PATIENT
  Age: 83 Year
  Sex: Male

DRUGS (12)
  1. CILOSTAZOL [Suspect]
     Indication: CEREBRAL INFARCTION
     Dosage: 200 MG
     Route: 048
     Dates: start: 20040721, end: 20060509
  2. ASPIRIN [Suspect]
     Dosage: 100 MG
     Route: 048
     Dates: start: 20040714, end: 20060509
  3. TRAPIDIL [Suspect]
     Dosage: 150 MG
     Route: 048
     Dates: start: 20040714, end: 20060509
  4. ATORVASTATIN [Concomitant]
  5. ALLOPURINOL [Concomitant]
  6. DILTIAZEM HYDROCHLORIDE [Concomitant]
  7. NIFEDIPINE [Concomitant]
  8. DIGOXIN [Concomitant]
  9. BETAHISTINE HYDROCHLORIDE [Concomitant]
  10. TULOBUTEROL HYDROCHLORIDE [Concomitant]
  11. DONEPEZIL HYDROCHLORIDE [Concomitant]
  12. HALOPERIDOL [Concomitant]

REACTIONS (8)
  - ANAEMIA [None]
  - CEREBRAL INFARCTION [None]
  - DISEASE RECURRENCE [None]
  - EMBOLIC STROKE [None]
  - FAECALOMA [None]
  - HEPATIC FUNCTION ABNORMAL [None]
  - RECTAL ULCER HAEMORRHAGE [None]
  - RENAL IMPAIRMENT [None]
